FAERS Safety Report 23859715 (Version 2)
Quarter: 2024Q2

REPORT INFORMATION
  Report Type: Report from Study
  Country: US (occurrence: US)
  Receive Date: 20240515
  Receipt Date: 20240619
  Transmission Date: 20240716
  Serious: Yes (Hospitalization)
  Sender: FDA-Public Use
  Company Number: US-BIOGEN-2024BI01264657

PATIENT
  Sex: Female

DRUGS (1)
  1. TYSABRI [Suspect]
     Active Substance: NATALIZUMAB
     Indication: Multiple sclerosis
     Route: 050
     Dates: start: 20240111, end: 20240403

REACTIONS (5)
  - Multiple sclerosis [Unknown]
  - Sepsis [Unknown]
  - Osteomyelitis [Unknown]
  - Fall [Recovered/Resolved]
  - Asthenia [Unknown]
